FAERS Safety Report 9890960 (Version 2)
Quarter: 2014Q2

REPORT INFORMATION
  Report Type: Report from Study
  Country: US (occurrence: US)
  Receive Date: 20140212
  Receipt Date: 20140403
  Transmission Date: 20141212
  Serious: Yes (Hospitalization)
  Sender: FDA-Public Use
  Company Number: US-ABBVIE-14P-163-1199226-00

PATIENT
  Sex: Male

DRUGS (1)
  1. ANDROGEL [Suspect]
     Indication: BLOOD TESTOSTERONE DECREASED

REACTIONS (10)
  - Transient ischaemic attack [Unknown]
  - Transient ischaemic attack [Unknown]
  - Transient ischaemic attack [Unknown]
  - Hypoaesthesia [Unknown]
  - Mental impairment [Unknown]
  - Weight decreased [Unknown]
  - Hypophagia [Unknown]
  - Vomiting [Unknown]
  - Blood pressure abnormal [Unknown]
  - Polycythaemia [Unknown]
